FAERS Safety Report 6524693-8 (Version None)
Quarter: 2009Q4

REPORT INFORMATION
  Report Type: 
  Country: None (occurrence: None)
  Receive Date: 20091222
  Receipt Date: 20091215
  Transmission Date: 20100525
  Serious: Yes (Other)
  Sender: FDA-Public Use
  Company Number: FABR-1001120

PATIENT
  Age: 52 Year
  Sex: Male
  Weight: 82.1 kg

DRUGS (8)
  1. FABRAZYME [Suspect]
     Indication: FABRY'S DISEASE
     Dosage: 75 MG, Q2W, INTRAVENOUS
     Route: 042
     Dates: start: 20020507
  2. FABRAZYME [Suspect]
  3. COUMADIN [Concomitant]
  4. ASPIRIN [Concomitant]
  5. METOPROLOL (METOPROLOL) [Concomitant]
  6. OMEPRAZOLE [Concomitant]
  7. SPIRIVA [Concomitant]
  8. SALBUTAMOL (SALBUTAMOL) [Concomitant]

REACTIONS (3)
  - ATRIAL FLUTTER [None]
  - DYSPNOEA [None]
  - HYPOTENSION [None]
